FAERS Safety Report 5102170-9 (Version None)
Quarter: 2006Q3

REPORT INFORMATION
  Report Type: 
  Country: None (occurrence: None)
  Receive Date: 20060912
  Receipt Date: 20060728
  Transmission Date: 20061208
  Serious: Yes (Death)
  Sender: FDA-Public Use
  Company Number: US-ABBOTT-06P-163-0339282-00

PATIENT
  Sex: Male

DRUGS (2)
  1. RITONAVIR SOFT GELATIN CAPSULES [Suspect]
     Indication: HIV INFECTION
     Route: 048
  2. APTIVUS [Suspect]
     Indication: HIV INFECTION
     Route: 048

REACTIONS (5)
  - CACHEXIA [None]
  - DRUG INEFFECTIVE [None]
  - GASTROENTERITIS CRYPTOSPORIDIAL [None]
  - MALNUTRITION [None]
  - MULTIPLE-DRUG RESISTANCE [None]
